FAERS Safety Report 17526689 (Version 1)
Quarter: 2020Q1

REPORT INFORMATION
  Report Type: Spontaneous
  Country: US (occurrence: US)
  Receive Date: 20200311
  Receipt Date: 20200311
  Transmission Date: 20200409
  Serious: Yes (Hospitalization)
  Sender: FDA-Public Use
  Company Number: None

PATIENT
  Age: 33 Year
  Sex: Female

DRUGS (8)
  1. KLONOPIN [Concomitant]
     Active Substance: CLONAZEPAM
  2. MULTI-VITAMIN [Concomitant]
     Active Substance: .ALPHA.-TOCOPHEROL ACETATE, DL-\ASCORBIC ACID\CYANOCOBALAMIN\FLUORIDE ION\FOLIC ACID\NIACIN\PYRIDOXINE\RIBOFLAVIN\THIAMINE\VITAMIN A\VITAMIN D
  3. MEDROXYPROGESTERONE [Suspect]
     Active Substance: MEDROXYPROGESTERONE
     Indication: MENSTRUATION IRREGULAR
     Dosage: ?          OTHER FREQUENCY:ONCE EVERY 3 MONTH;?
     Route: 030
     Dates: start: 20150917
  4. KEPPRA [Concomitant]
     Active Substance: LEVETIRACETAM
  5. LAMICTAL [Concomitant]
     Active Substance: LAMOTRIGINE
  6. EPIDIOLEX [Concomitant]
     Active Substance: CANNABIDIOL
  7. CALCIUM [Concomitant]
     Active Substance: CALCIUM
  8. FORTICAL [Concomitant]
     Active Substance: CALCITONIN SALMON

REACTIONS (1)
  - Feeding tube user [None]

NARRATIVE: CASE EVENT DATE: 20200310
